FAERS Safety Report 6581905-2 (Version None)
Quarter: 2010Q1

REPORT INFORMATION
  Report Type: 
  Country: None (occurrence: None)
  Receive Date: 20100215
  Receipt Date: 20100204
  Transmission Date: 20100710
  Serious: Yes (Other)
  Sender: FDA-Public Use
  Company Number: PT-ASTRAZENECA-2009SE31851

PATIENT
  Age: 12 Year
  Sex: Male
  Weight: 45 kg

DRUGS (2)
  1. SYMBICORT [Suspect]
     Indication: ASTHMA
     Dosage: 160/4.5 UG ONE INHALATION DAILY
     Route: 055
     Dates: start: 20060101
  2. SYMBICORT [Suspect]
     Dosage: 160/4.5 UG ONE INHALATION TWICE DAILY
     Route: 055
     Dates: start: 20060101

REACTIONS (2)
  - OVERDOSE [None]
  - WHEEZING [None]
